FAERS Safety Report 6750919-1 (Version None)
Quarter: 2010Q2

REPORT INFORMATION
  Report Type: 
  Country: None (occurrence: None)
  Receive Date: 20100602
  Receipt Date: 20100528
  Transmission Date: 20101027
  Serious: Yes (Life-Threatening, Hospitalization)
  Sender: FDA-Public Use
  Company Number: PHHO2010TR08119

PATIENT
  Sex: Female
  Weight: 54 kg

DRUGS (3)
  1. ICL670A ICL+DISTAB [Suspect]
     Indication: IRON OVERLOAD
     Dosage: UNK
     Route: 058
     Dates: start: 20091207
  2. INSULIN [Concomitant]
     Indication: DIABETES MELLITUS
     Dosage: UNK
  3. FOLBIOL [Concomitant]

REACTIONS (6)
  - ABDOMINAL ABSCESS [None]
  - ABDOMINAL MASS [None]
  - ABDOMINAL OPERATION [None]
  - ABDOMINAL PAIN [None]
  - KLEBSIELLA INFECTION [None]
  - PYREXIA [None]
